FAERS Safety Report 21890388 (Version 1)
Quarter: 2023Q1

REPORT INFORMATION
  Report Type: Spontaneous
  Country: US (occurrence: None)
  Receive Date: 20230119
  Receipt Date: 20230119
  Transmission Date: 20230418
  Serious: Yes (Hospitalization)
  Sender: FDA-Public Use
  Company Number: None

PATIENT
  Age: 55 Year
  Sex: Female
  Weight: 135.08 kg

DRUGS (29)
  1. CAPECITABINE [Suspect]
     Active Substance: CAPECITABINE
     Indication: Rectal cancer
     Dosage: 2000MG TWICE DAILY ORAL
     Route: 048
     Dates: start: 202212
  2. ANTIFUNGAL [Concomitant]
  3. ARMOUR THRYOID [Concomitant]
  4. AUGMENTIN [Concomitant]
     Active Substance: AMOXICILLIN\CLAVULANATE POTASSIUM
  5. BACTRIM DS [Concomitant]
     Active Substance: SULFAMETHOXAZOLE\TRIMETHOPRIM
  6. BENADRYL [Concomitant]
     Active Substance: DIPHENHYDRAMINE HYDROCHLORIDE
  7. CIPRO [Concomitant]
     Active Substance: CIPROFLOXACIN HYDROCHLORIDE
  8. CLARITIN [Concomitant]
     Active Substance: LORATADINE
  9. CLINDAGEL [Concomitant]
     Active Substance: CLINDAMYCIN PHOSPHATE
  10. CROLMOLYN [Concomitant]
  11. MAGOX [Concomitant]
  12. CYMBALTA [Concomitant]
     Active Substance: DULOXETINE HYDROCHLORIDE
  13. DEXAMETHASONE [Concomitant]
  14. DOXYCYCLINE [Concomitant]
     Active Substance: DOXYCYCLINE
  15. DRENA-PLUS [Concomitant]
  16. EMLA [Concomitant]
     Active Substance: LIDOCAINE\PRILOCAINE
  17. GABAPENTIN [Concomitant]
     Active Substance: GABAPENTIN
  18. HYDROCORTISONE [Concomitant]
     Active Substance: HYDROCORTISONE
  19. LASIX [Concomitant]
     Active Substance: FUROSEMIDE
  20. LEVOFLOXACIN [Concomitant]
     Active Substance: LEVOFLOXACIN
  21. METOPROLOL [Concomitant]
  22. MUCINEX [Concomitant]
     Active Substance: GUAIFENESIN
  23. MULTIVITMIN [Concomitant]
  24. NORCO [Concomitant]
     Active Substance: ACETAMINOPHEN\HYDROCODONE BITARTRATE
  25. ONDANSETRON [Concomitant]
     Active Substance: ONDANSETRON
  26. PHENERGAN GEL [Concomitant]
  27. VITAMIN D3 [Concomitant]
     Active Substance: CHOLECALCIFEROL
  28. VIBRAMYCIN [Concomitant]
     Active Substance: DOXYCYCLINE
  29. XARELTO [Concomitant]
     Active Substance: RIVAROXABAN

REACTIONS (1)
  - Sepsis [None]
